FAERS Safety Report 19686709 (Version 8)
Quarter: 2022Q1

REPORT INFORMATION
  Report Type: Report from Study
  Country: FR (occurrence: FR)
  Receive Date: 20210811
  Receipt Date: 20220210
  Transmission Date: 20220423
  Serious: Yes (Death, Life-Threatening, Hospitalization, Other)
  Sender: FDA-Public Use
  Company Number: FR-JNJFOC-20210701530

PATIENT
  Age: 56 Year
  Sex: Male
  Weight: 75 kg

DRUGS (22)
  1. IBRUTINIB [Suspect]
     Active Substance: IBRUTINIB
     Indication: Central nervous system lymphoma
     Route: 048
     Dates: start: 20210620, end: 20210629
  2. IBRUTINIB [Suspect]
     Active Substance: IBRUTINIB
     Dosage: DATE OF LAST ADMINISTRATION BEFORE EVENT- 08-JUL-2021
     Route: 048
     Dates: end: 20210719
  3. IBRUTINIB [Suspect]
     Active Substance: IBRUTINIB
     Route: 048
     Dates: start: 20210520, end: 20210715
  4. RITUXIMAB [Concomitant]
     Active Substance: RITUXIMAB
     Indication: Central nervous system lymphoma
     Route: 065
     Dates: start: 20210618, end: 20210618
  5. METHOTREXATE [Concomitant]
     Active Substance: METHOTREXATE
     Indication: Central nervous system lymphoma
     Route: 042
     Dates: start: 20210618, end: 20210705
  6. PROCARBAZINE [Concomitant]
     Active Substance: PROCARBAZINE
     Indication: Central nervous system lymphoma
     Route: 048
     Dates: start: 20210618, end: 20210624
  7. VINCRISTINE [Concomitant]
     Active Substance: VINCRISTINE
     Indication: Central nervous system lymphoma
     Route: 065
     Dates: start: 20210618, end: 20210705
  8. PREDNISONE [Concomitant]
     Active Substance: PREDNISONE
     Indication: Central nervous system lymphoma
     Route: 065
     Dates: start: 20210618, end: 20210705
  9. MEDROL [Concomitant]
     Active Substance: METHYLPREDNISOLONE
     Indication: Oedema
     Route: 048
     Dates: start: 20210622
  10. MEDROL [Concomitant]
     Active Substance: METHYLPREDNISOLONE
     Dosage: 0.5 CP IN THE MORNING
  11. LEVOTHYROXINE [Concomitant]
     Active Substance: LEVOTHYROXINE
     Indication: Hypothyroidism
     Dosage: 1 TABLET IN THE MORNING ON AN EMPTY STOMACH
     Route: 048
     Dates: start: 202104
  12. DESMOPRESSIN ACETATE [Concomitant]
     Active Substance: DESMOPRESSIN ACETATE
     Indication: Hypernatraemia
     Route: 048
     Dates: start: 202104, end: 20210628
  13. DESMOPRESSIN ACETATE [Concomitant]
     Active Substance: DESMOPRESSIN ACETATE
  14. PENTACARINAT [Concomitant]
     Active Substance: PENTAMIDINE ISETHIONATE
     Indication: Product used for unknown indication
     Dates: start: 202106
  15. FAMOTIDINE [Concomitant]
     Active Substance: FAMOTIDINE
     Indication: Product used for unknown indication
     Dosage: IN THE EVENING
  16. ALPRAZOLAM [Concomitant]
     Active Substance: ALPRAZOLAM
     Indication: Anxiety
     Dosage: 1 COMP IF ANXIETY (MAX 4/DAY)
  17. ZOPICLONE [Concomitant]
     Active Substance: ZOPICLONE
     Indication: Insomnia
     Dosage: AT BEDTIME
     Route: 048
  18. VALACYCLOVIR HYDROCHLORIDE [Concomitant]
     Active Substance: VALACYCLOVIR HYDROCHLORIDE
     Indication: Product used for unknown indication
     Dosage: MORNING AND EVENING
  19. DESMOPRESSIN ACETATE [Concomitant]
     Active Substance: DESMOPRESSIN ACETATE
     Indication: Product used for unknown indication
     Dosage: 0.5 TABLET MORNING, NOON AND AT BEDTIME (22 HOURS)
     Route: 048
  20. ACETAMINOPHEN [Concomitant]
     Active Substance: ACETAMINOPHEN
     Indication: Pain
     Dosage: IF PAIN (MAX 4/DAY)
  21. POTASSIUM CHLORIDE [Concomitant]
     Active Substance: POTASSIUM CHLORIDE
     Indication: Product used for unknown indication
     Dosage: 2 CAPSULES MORNING, NOON AND EVENING
     Route: 048
  22. LEVOFLOXACIN [Concomitant]
     Active Substance: LEVOFLOXACIN
     Indication: Product used for unknown indication
     Dosage: IN THE MORNING
     Route: 058

REACTIONS (7)
  - Urosepsis [Fatal]
  - Bronchopulmonary aspergillosis [Fatal]
  - Pneumocystis jirovecii pneumonia [Fatal]
  - Urinary tract infection [Fatal]
  - Central nervous system lymphoma [Fatal]
  - Hyponatraemia [Fatal]
  - Hypernatraemia [Fatal]

NARRATIVE: CASE EVENT DATE: 20210628
